FAERS Safety Report 7087344-2 (Version None)
Quarter: 2010Q4

REPORT INFORMATION
  Report Type: 
  Country: None (occurrence: None)
  Receive Date: 20101108
  Receipt Date: 20101028
  Transmission Date: 20110411
  Serious: Yes (Hospitalization)
  Sender: FDA-Public Use
  Company Number: NL-BIOGENIDEC-2010BI037688

PATIENT
  Age: 44 Year
  Sex: Male

DRUGS (1)
  1. TYSABRI [Suspect]
     Indication: MULTIPLE SCLEROSIS
     Route: 042
     Dates: start: 20090201

REACTIONS (8)
  - ANXIETY [None]
  - BURNING SENSATION [None]
  - EYE DISORDER [None]
  - FATIGUE [None]
  - FEELING DRUNK [None]
  - MUSCLE SPASMS [None]
  - VISION BLURRED [None]
  - VISUAL IMPAIRMENT [None]
